FAERS Safety Report 5675948-0 (Version None)
Quarter: 2008Q2

REPORT INFORMATION
  Report Type: 
  Country: None (occurrence: None)
  Receive Date: 20080310
  Receipt Date: 20071217
  Transmission Date: 20081010
  Serious: Yes (Other)
  Sender: FDA-Public Use
  Company Number: 07-541

PATIENT
  Age: 49 Year
  Sex: Female

DRUGS (6)
  1. ALEVE [Suspect]
     Indication: KNEE OPERATION
     Dosage: 440 MG, DAILY, ORAL
     Route: 048
     Dates: start: 20071206, end: 20071208
  2. ALEVE [Suspect]
     Indication: KNEE OPERATION
     Dosage: 440 MG, DAILY, ORAL
     Route: 048
     Dates: start: 20071209
  3. ADVIL [Concomitant]
  4. ZANAFLEX [Concomitant]
  5. GABAPENTIN [Concomitant]
  6. VICODIN [Concomitant]

REACTIONS (2)
  - DYSPHAGIA [None]
  - PHARYNGEAL OEDEMA [None]
